FAERS Safety Report 9442333 (Version 1)
Quarter: 2013Q3

REPORT INFORMATION
  Report Type: Spontaneous
  Country: US (occurrence: US)
  Receive Date: 20130806
  Receipt Date: 20130806
  Transmission Date: 20140515
  Serious: Yes (Other)
  Sender: FDA-Public Use
  Company Number: US-ELI_LILLY_AND_COMPANY-US201308000165

PATIENT
  Sex: Female

DRUGS (2)
  1. EFFIENT [Suspect]
     Indication: STENT PLACEMENT
     Dosage: 60 MG, SINGLE
  2. EFFIENT [Suspect]
     Dosage: UNK, EVERY THREE DAYS OR MORE

REACTIONS (2)
  - Device occlusion [Unknown]
  - Drug dose omission [Unknown]
